FAERS Safety Report 7544414-X (Version None)
Quarter: 2011Q2

REPORT INFORMATION
  Report Type: 
  Country: None (occurrence: None)
  Receive Date: 20110613
  Receipt Date: 20081029
  Transmission Date: 20111010
  Serious: Yes (Hospitalization)
  Sender: FDA-Public Use
  Company Number: PHHY2008JP27138

PATIENT
  Sex: Female

DRUGS (13)
  1. SOLU-MEDROL [Concomitant]
     Dosage: 250MG
     Route: 042
  2. PROGRAF [Concomitant]
     Indication: RENAL TRANSPLANT
     Dosage: 0.96 MG, UNK
     Route: 042
     Dates: start: 20071211, end: 20071217
  3. SOLU-MEDROL [Concomitant]
     Indication: RENAL TRANSPLANT
     Dosage: 625 MG, UNK
     Route: 042
     Dates: start: 20071211
  4. INOVAN [Concomitant]
     Indication: BLOOD PRESSURE DECREASED
     Dosage: 80 MG, UNK
     Route: 042
     Dates: start: 20071211, end: 20071213
  5. PENTCILLIN [Concomitant]
     Indication: INFECTION PROPHYLAXIS
     Dosage: 2 MG, UNK
     Route: 042
     Dates: start: 20071211, end: 20071217
  6. ALBUMIN (HUMAN) [Concomitant]
     Indication: HYPOALBUMINAEMIA
     Dosage: 100 ML, UNK
     Route: 042
     Dates: start: 20071211, end: 20071213
  7. SULFAMETHOXAZOLE [Concomitant]
     Indication: PNEUMONIA
     Dosage: 1 DF, UNK
     Dates: start: 20071212
  8. PROGRAF [Concomitant]
     Dosage: UNK
     Route: 048
     Dates: start: 20071217
  9. SIMULECT [Suspect]
     Indication: RENAL TRANSPLANT
     Dosage: 20 MG, UNK
     Route: 042
     Dates: start: 20071211, end: 20071211
  10. BREDININ [Concomitant]
     Indication: RENAL TRANSPLANT
     Dosage: 150 MG, UNK
     Route: 048
     Dates: start: 20071211
  11. SIMULECT [Suspect]
     Dosage: 20 MG/DAY
     Route: 042
     Dates: start: 20071215, end: 20071215
  12. SOLU-MEDROL [Concomitant]
     Dosage: 125 MG
     Route: 042
     Dates: end: 20071213
  13. PREDNISOLONE [Concomitant]
     Indication: RENAL TRANSPLANT
     Dosage: 50 MG, UNK
     Route: 048
     Dates: start: 20071214

REACTIONS (5)
  - DYSPHONIA [None]
  - BLOOD CREATININE INCREASED [None]
  - PARALYSIS [None]
  - KIDNEY TRANSPLANT REJECTION [None]
  - DYSPHAGIA [None]
